FAERS Safety Report 25044223 (Version 2)
Quarter: 2025Q1

REPORT INFORMATION
  Report Type: Spontaneous
  Country: US (occurrence: US)
  Receive Date: 20250306
  Receipt Date: 20250317
  Transmission Date: 20250409
  Serious: Yes (Other)
  Sender: CATALYST PHARMA
  Company Number: US-CATALYST PHARMACEUTICALS, INC-US-CATA-25-00311

PATIENT
  Sex: Female
  Weight: 83.447 kg

DRUGS (25)
  1. FIRDAPSE [Suspect]
     Active Substance: AMIFAMPRIDINE PHOSPHATE
     Indication: Myasthenic syndrome
     Dosage: 1 TABLET 1 TIME A DAY
     Route: 048
     Dates: start: 20190313, end: 202502
  2. FIRDAPSE [Suspect]
     Active Substance: AMIFAMPRIDINE PHOSPHATE
     Dosage: 1 TABLET 2 TIMES A DAY
     Route: 048
     Dates: start: 20250226
  3. ADVANCED STEM CELL SUPPORT FORMULA [Concomitant]
     Indication: Ligament rupture
     Dosage: 1 OUNCE DAILY
     Route: 065
  4. ALIGN [Concomitant]
     Active Substance: BIFIDOBACTERIUM LONGUM SUBSP. INFANTIS
     Indication: Gastrointestinal disorder
     Dosage: 4 MG DAILY
     Route: 065
  5. AMITRIPTYLINE [Concomitant]
     Active Substance: AMITRIPTYLINE
     Indication: Atypical migraine
     Dosage: 25 MG AT BEDTIME
     Route: 065
  6. AVODART [Concomitant]
     Active Substance: DUTASTERIDE
     Indication: Hirsutism
     Dosage: 0.5 MG DAILY
     Route: 065
  7. BIOTIN [Concomitant]
     Active Substance: BIOTIN
     Indication: Hypovitaminosis
     Dosage: 2500 MCG DAILY
     Route: 065
  8. FISH OIL [Concomitant]
     Active Substance: FISH OIL
     Indication: Hypovitaminosis
     Dosage: 1500 MG DAILY
     Route: 065
  9. FOLATE SODIUM [Concomitant]
     Active Substance: FOLATE SODIUM
     Indication: Hypovitaminosis
     Dosage: 1333 MCG DAILY
     Route: 065
  10. HYDROXYCHLOROQUINE [Concomitant]
     Active Substance: HYDROXYCHLOROQUINE
     Indication: Arthritis
     Dosage: 200 MG DAILY
     Route: 065
  11. LISINOPRIL [Concomitant]
     Active Substance: LISINOPRIL
     Indication: Hypertension
     Dosage: 40 MG DAILY
     Route: 065
  12. MESTINON [Concomitant]
     Active Substance: PYRIDOSTIGMINE BROMIDE
     Indication: Myasthenic syndrome
     Dosage: 60 MG DAILY
     Route: 065
  13. MOBIC [Concomitant]
     Active Substance: MELOXICAM
     Indication: Arthritis
     Route: 065
  14. NIACIN [Concomitant]
     Active Substance: NIACIN
     Indication: Hypovitaminosis
     Dosage: 50 MG DAILY
     Route: 065
  15. NORVASC [Concomitant]
     Active Substance: AMLODIPINE BESYLATE
     Indication: Hypertension
     Dosage: 10 MG DAILY
     Route: 065
  16. FISH OIL\OMEGA-3 FATTY ACIDS [Concomitant]
     Active Substance: FISH OIL\OMEGA-3 FATTY ACIDS
     Indication: Hyperlipidaemia
     Dosage: 500 MG DAILY
     Route: 065
  17. PANTOTHENIC ACID [Concomitant]
     Active Substance: PANTOTHENIC ACID
     Indication: Hypovitaminosis
     Dosage: 21 MG DAILY
     Route: 065
  18. PLAQUENIL [Concomitant]
     Active Substance: HYDROXYCHLOROQUINE SULFATE
     Indication: Myasthenic syndrome
     Dosage: 200 MG DAILY
     Route: 065
  19. RIBOFLAVIN [Concomitant]
     Active Substance: RIBOFLAVIN
     Indication: Hypovitaminosis
     Dosage: 10 MG DAILY
     Route: 065
  20. SINGULAIR [Concomitant]
     Active Substance: MONTELUKAST SODIUM
     Indication: Hypersensitivity
     Dosage: 10 MG AT BEDTIME
     Route: 065
  21. SYNTHROID [Concomitant]
     Active Substance: LEVOTHYROXINE SODIUM
     Indication: Hypothyroidism
     Dosage: 150 MCG DAILY
     Route: 065
  22. THIAMINE [Concomitant]
     Active Substance: THIAMINE
     Indication: Hypovitaminosis
     Dosage: 10 MG DAILY
     Route: 065
  23. HERBALS\TURMERIC [Concomitant]
     Active Substance: HERBALS\TURMERIC
     Indication: Ligament rupture
     Dosage: 1000 MG TWICE A DAY
     Route: 065
  24. VITAMIN A [Concomitant]
     Active Substance: VITAMIN A
     Indication: Alopecia
     Dosage: 300 MG DAILY
     Route: 065
  25. VITAMIN D3 [Concomitant]
     Active Substance: CHOLECALCIFEROL
     Indication: Hypovitaminosis
     Dosage: 2000 IU DAILY
     Route: 065

REACTIONS (3)
  - Femur fracture [Unknown]
  - Myasthenic syndrome [Unknown]
  - Condition aggravated [Unknown]

NARRATIVE: CASE EVENT DATE: 20250101
